FAERS Safety Report 6959043-6 (Version None)
Quarter: 2010Q3

REPORT INFORMATION
  Report Type: 
  Country: None (occurrence: None)
  Receive Date: 20100831
  Receipt Date: 20100818
  Transmission Date: 20110219
  Serious: Yes (Hospitalization)
  Sender: FDA-Public Use
  Company Number: DE-JNJFOC-20100708928

PATIENT
  Age: 84 Year
  Sex: Female

DRUGS (9)
  1. LEVOFLOXACIN [Suspect]
     Indication: URINARY TRACT INFECTION
     Route: 048
  2. PANTOPRAZOLE [Interacting]
     Indication: PROPHYLAXIS AGAINST GASTROINTESTINAL ULCER
     Route: 048
  3. AMPICILLIN SODIUM/SULBACTAM SODIUM [Interacting]
     Indication: HELICOBACTER INFECTION
     Route: 042
  4. CLARITHROMYCIN [Interacting]
     Indication: HELICOBACTER INFECTION
     Route: 048
  5. SIMVASTATIN [Concomitant]
     Indication: ISCHAEMIC HEART DISEASE PROPHYLAXIS
     Route: 065
  6. ASPIRIN [Concomitant]
     Indication: ISCHAEMIC HEART DISEASE PROPHYLAXIS
     Route: 065
  7. METRONIDAZOLE [Concomitant]
     Indication: HELICOBACTER INFECTION
     Route: 065
  8. METOPROLOL TARTRATE [Concomitant]
     Indication: HYPERTENSION
     Route: 065
  9. RAMIPRIL [Concomitant]
     Indication: HYPERTENSION
     Route: 065

REACTIONS (2)
  - CLOSTRIDIUM DIFFICILE COLITIS [None]
  - DRUG INTERACTION [None]
